FAERS Safety Report 24791886 (Version 1)
Quarter: 2024Q4

REPORT INFORMATION
  Report Type: Report from Study
  Country: BR (occurrence: BR)
  Receive Date: 20241231
  Receipt Date: 20241231
  Transmission Date: 20250115
  Serious: Yes (Other)
  Sender: CELLTRION
  Company Number: BR-CELLTRION INC.-2023BR012031

PATIENT

DRUGS (1)
  1. INFLIXIMAB-DYYB [Suspect]
     Active Substance: INFLIXIMAB-DYYB
     Indication: Colitis ulcerative
     Dosage: 4 AMPOULES EVERY MONTH
     Route: 042
     Dates: start: 20221121

REACTIONS (4)
  - Appendicectomy [Recovered/Resolved]
  - Influenza [Unknown]
  - Intentional dose omission [Recovered/Resolved]
  - Intentional product use issue [Unknown]
